FAERS Safety Report 13419397 (Version 4)
Quarter: 2023Q1

REPORT INFORMATION
  Report Type: Spontaneous
  Country: US (occurrence: US)
  Receive Date: 20170407
  Receipt Date: 20230222
  Transmission Date: 20230417
  Serious: No
  Sender: FDA-Public Use
  Company Number: US-JNJFOC-20170316752

PATIENT
  Age: 13 Year
  Sex: Male

DRUGS (7)
  1. RISPERDAL [Suspect]
     Active Substance: RISPERIDONE
     Indication: Bipolar disorder
     Dosage: VARYING DOSES OF 0.5, 1 AND 2 MG
     Route: 048
     Dates: start: 20090903
  2. RISPERDAL [Suspect]
     Active Substance: RISPERIDONE
     Indication: Adjustment disorder
     Dosage: VARYING DOSES OF 0.5, 1 AND 2 MG
     Route: 048
     Dates: start: 20101028
  3. RISPERDAL [Suspect]
     Active Substance: RISPERIDONE
     Dosage: VARYING DOSES OF 0.5, 1 AND 2 MG
     Route: 048
     Dates: start: 20110603, end: 20140221
  4. INVEGA [Suspect]
     Active Substance: PALIPERIDONE
     Indication: Bipolar disorder
     Route: 048
     Dates: start: 20101028
  5. INVEGA [Suspect]
     Active Substance: PALIPERIDONE
     Indication: Adjustment disorder
     Route: 048
     Dates: start: 20110603, end: 20140204
  6. RISPERIDONE [Suspect]
     Active Substance: RISPERIDONE
     Indication: Bipolar disorder
     Dosage: VARYING DOSES OF 0.5 AND 1 MG
     Route: 048
     Dates: start: 20101028, end: 20121028
  7. RISPERIDONE [Suspect]
     Active Substance: RISPERIDONE
     Indication: Adjustment disorder

REACTIONS (3)
  - Gynaecomastia [Unknown]
  - Emotional distress [Unknown]
  - Somnolence [Unknown]

NARRATIVE: CASE EVENT DATE: 20100101
